FAERS Safety Report 17088833 (Version 1)
Quarter: 2019Q4

REPORT INFORMATION
  Report Type: Spontaneous
  Country: US (occurrence: US)
  Receive Date: 20191128
  Receipt Date: 20191128
  Transmission Date: 20200122
  Serious: Yes (Hospitalization)
  Sender: FDA-Public Use
  Company Number: US-ROCHE-2204829

PATIENT
  Sex: Female
  Weight: 104.87 kg

DRUGS (7)
  1. MONTELUKAST [Concomitant]
     Active Substance: MONTELUKAST SODIUM
     Route: 048
     Dates: start: 20170203
  2. OMEPRAZOLE. [Concomitant]
     Active Substance: OMEPRAZOLE
     Route: 048
     Dates: start: 20170203
  3. HERCEPTIN [Suspect]
     Active Substance: TRASTUZUMAB
     Indication: ENDOMETRIAL CANCER
     Dosage: LOADING DOSE
     Route: 042
     Dates: start: 20170117
  4. PERJETA [Suspect]
     Active Substance: PERTUZUMAB
     Indication: ENDOMETRIAL CANCER
     Dosage: 420/14 ML, (INFUSE 840 MG INTRAVENOUSLY)
     Route: 042
     Dates: start: 20180925
  5. FUROSEMIDE. [Concomitant]
     Active Substance: FUROSEMIDE
     Route: 048
     Dates: start: 20170203
  6. LEVOCETIRIZINE [Concomitant]
     Active Substance: LEVOCETIRIZINE
     Route: 048
     Dates: start: 20170203
  7. XARELTO [Concomitant]
     Active Substance: RIVAROXABAN
     Route: 048
     Dates: start: 20170203

REACTIONS (3)
  - Sepsis [Unknown]
  - Off label use [Unknown]
  - Intentional product use issue [Unknown]
